FAERS Safety Report 6299991-6 (Version None)
Quarter: 2009Q3

REPORT INFORMATION
  Report Type: 
  Country: None (occurrence: None)
  Receive Date: 20090806
  Receipt Date: 20090727
  Transmission Date: 20100115
  Serious: Yes (Hospitalization)
  Sender: FDA-Public Use
  Company Number: US-ELI_LILLY_AND_COMPANY-US200906007078

PATIENT
  Sex: Female

DRUGS (1)
  1. FORTEO [Suspect]
     Dates: start: 20090501, end: 20090609

REACTIONS (3)
  - ABASIA [None]
  - BLOOD PARATHYROID HORMONE INCREASED [None]
  - BLOOD PRESSURE DECREASED [None]
